FAERS Safety Report 8469601-8 (Version None)
Quarter: 2012Q2

REPORT INFORMATION
  Report Type: 
  Country: None (occurrence: None)
  Receive Date: 20120626
  Receipt Date: 20120619
  Transmission Date: 20120825
  Serious: Yes (Death, Hospitalization)
  Sender: FDA-Public Use
  Company Number: JP-BAXTER-2012BH003542

PATIENT
  Sex: Male

DRUGS (7)
  1. PIRFENIDONE [Suspect]
     Indication: IDIOPATHIC PULMONARY FIBROSIS
     Route: 048
     Dates: start: 20090629, end: 20090713
  2. PIRFENIDONE [Suspect]
     Route: 048
     Dates: start: 20090714, end: 20091022
  3. CYCLOPHOSPHAMIDE [Suspect]
     Indication: IDIOPATHIC PULMONARY FIBROSIS
     Route: 048
     Dates: start: 20090423, end: 20091022
  4. NORVASC [Concomitant]
     Route: 048
  5. ADALAT CC [Concomitant]
     Route: 048
  6. OXYGEN [Concomitant]
  7. PREDNISOLONE [Concomitant]
     Indication: IDIOPATHIC PULMONARY FIBROSIS
     Route: 048

REACTIONS (2)
  - IDIOPATHIC PULMONARY FIBROSIS [None]
  - HERPES ZOSTER [None]
